FAERS Safety Report 24138614 (Version 3)
Quarter: 2024Q3

REPORT INFORMATION
  Report Type: Spontaneous
  Country: US (occurrence: US)
  Receive Date: 20240725
  Receipt Date: 20240820
  Transmission Date: 20241016
  Serious: Yes (Death)
  Sender: ALKERMES
  Company Number: US-ALKERMES INC.-ALK-2024-001912

PATIENT
  Age: 43 Year
  Sex: Male
  Weight: 156.92 kg

DRUGS (1)
  1. VIVITROL [Suspect]
     Active Substance: NALTREXONE
     Indication: Alcoholism
     Dosage: 380 MILLIGRAM, QMO
     Route: 030
     Dates: start: 20220322, end: 20240423

REACTIONS (2)
  - Carbon monoxide poisoning [Fatal]
  - Completed suicide [Fatal]

NARRATIVE: CASE EVENT DATE: 20240706
